FAERS Safety Report 11844676 (Version 2)
Quarter: 2016Q1

REPORT INFORMATION
  Report Type: Spontaneous
  Country: US (occurrence: US)
  Receive Date: 20151217
  Receipt Date: 20160121
  Transmission Date: 20160526
  Serious: Yes (Other)
  Sender: FDA-Public Use
  Company Number: US-MEDTRONIC-1045597

PATIENT
  Age: 41 Year
  Sex: Male

DRUGS (1)
  1. LIORESAL [Suspect]
     Active Substance: BACLOFEN
     Indication: MUSCLE SPASTICITY
     Route: 037

REACTIONS (3)
  - Device kink [None]
  - Muscle spasticity [Recovered/Resolved]
  - Implant site fibrosis [Recovered/Resolved]

NARRATIVE: CASE EVENT DATE: 20151103
